FAERS Safety Report 5127500-3 (Version None)
Quarter: 2006Q4

REPORT INFORMATION
  Report Type: 
  Country: None (occurrence: None)
  Receive Date: 20061016
  Receipt Date: 20061002
  Transmission Date: 20070319
  Serious: Yes (Hospitalization)
  Sender: FDA-Public Use
  Company Number: PHEH2006US12385

PATIENT
  Age: 73 Year
  Sex: Female

DRUGS (4)
  1. DIOVAN [Suspect]
     Dosage: UNK, UNK
  2. AMLODIPINE [Suspect]
     Dosage: UNK, UNK
  3. ATORVASTATIN CALCIUM [Suspect]
     Dosage: UNK, UNK
  4. FENOFIBRATE [Suspect]
     Dosage: UNK, UNK

REACTIONS (8)
  - ACIDOSIS [None]
  - CARDIAC FAILURE CONGESTIVE [None]
  - COLITIS ISCHAEMIC [None]
  - DEEP VEIN THROMBOSIS [None]
  - HYPOTENSION [None]
  - INTENTIONAL OVERDOSE [None]
  - INTUBATION [None]
  - PNEUMONIA [None]
